FAERS Safety Report 5708197-8 (Version None)
Quarter: 2008Q2

REPORT INFORMATION
  Report Type: 
  Country: None (occurrence: None)
  Receive Date: 20080417
  Receipt Date: 20080408
  Transmission Date: 20081010
  Serious: Yes (Other)
  Sender: FDA-Public Use
  Company Number: DE-JNJFOC-20080402419

PATIENT
  Sex: Female
  Weight: 77 kg

DRUGS (5)
  1. DOXORUBICIN HCL [Suspect]
     Indication: BREAST CANCER METASTATIC
     Dosage: 44MG DOSE
     Route: 042
  2. AMLOBETA [Concomitant]
     Route: 048
  3. ENALAPRIL MALEATE [Concomitant]
     Route: 048
  4. CARBIMAZOLE [Concomitant]
     Route: 048
  5. SIMVAHEXAL [Concomitant]
     Route: 048

REACTIONS (5)
  - ANGINA PECTORIS [None]
  - BLOOD PRESSURE INCREASED [None]
  - CHILLS [None]
  - FLUSHING [None]
  - HEART RATE INCREASED [None]
